FAERS Safety Report 14716779 (Version 2)
Quarter: 2018Q3

REPORT INFORMATION
  Report Type: Report from Study
  Country: US (occurrence: US)
  Receive Date: 20180404
  Receipt Date: 20180816
  Transmission Date: 20181010
  Serious: Yes (Death)
  Sender: FDA-Public Use
  Company Number: US-BAYER-2018-058309

PATIENT
  Age: 71 Year
  Sex: Female
  Weight: 53.52 kg

DRUGS (4)
  1. LETAIRIS [Concomitant]
     Active Substance: AMBRISENTAN
     Dosage: UNK
  2. ADEMPAS [Suspect]
     Active Substance: RIOCIGUAT
     Indication: PULMONARY ARTERIAL HYPERTENSION
     Dosage: 2.5 MG, TID
     Route: 048
  3. ADEMPAS [Suspect]
     Active Substance: RIOCIGUAT
     Indication: PULMONARY ARTERIAL HYPERTENSION
     Dosage: UNK
     Dates: start: 20161018
  4. REMODULIN [Concomitant]
     Active Substance: TREPROSTINIL
     Dosage: UNK

REACTIONS (2)
  - Hospice care [Unknown]
  - Pulmonary hypertension [Fatal]

NARRATIVE: CASE EVENT DATE: 20180325
